FAERS Safety Report 6296265-4 (Version None)
Quarter: 2009Q3

REPORT INFORMATION
  Report Type: 
  Country: None (occurrence: None)
  Receive Date: 20090803
  Receipt Date: 20090803
  Transmission Date: 20100115
  Serious: No
  Sender: FDA-Public Use
  Company Number: None

PATIENT
  Age: 46 Year
  Sex: Female
  Weight: 52.1637 kg

DRUGS (1)
  1. PRISTIQ [Suspect]
     Indication: PAIN MANAGEMENT
     Dosage: 1 DAILY PO
     Route: 048
     Dates: start: 20080826, end: 20090618

REACTIONS (5)
  - AUTOIMMUNE DISORDER [None]
  - BLOOD PRESSURE SYSTOLIC INCREASED [None]
  - DIZZINESS [None]
  - DYSPEPSIA [None]
  - WRONG TECHNIQUE IN DRUG USAGE PROCESS [None]
